FAERS Safety Report 6620924-4 (Version None)
Quarter: 2010Q1

REPORT INFORMATION
  Report Type: 
  Country: None (occurrence: None)
  Receive Date: 20100309
  Receipt Date: 20100222
  Transmission Date: 20100710
  Serious: Yes (Life-Threatening, Hospitalization, Other)
  Sender: FDA-Public Use
  Company Number: PL-PFIZER INC-2010022855

PATIENT
  Age: 17 Year
  Sex: Female

DRUGS (4)
  1. AMLODIPINE BESYLATE [Suspect]
     Indication: SUICIDE ATTEMPT
     Dosage: 290 MG, IN 1 TOTAL
     Route: 048
  2. IBUPROFEN [Suspect]
     Dosage: 4400 MG,  IN 1 TOTAL
     Route: 048
  3. VERAPAMIL HYDROCHLORIDE [Suspect]
     Indication: SUICIDE ATTEMPT
     Dosage: 2400 MG, IN 1 TOTAL
     Route: 048
  4. METOPROLOL TARTRATE [Suspect]
     Indication: SUICIDE ATTEMPT
     Dosage: 500 MG, IN 1 TOTAL
     Route: 048

REACTIONS (5)
  - CARDIOGENIC SHOCK [None]
  - COMA [None]
  - DRUG TOXICITY [None]
  - OVERDOSE [None]
  - SUICIDE ATTEMPT [None]
